FAERS Safety Report 8462853-X (Version None)
Quarter: 2012Q2

REPORT INFORMATION
  Report Type: 
  Country: None (occurrence: None)
  Receive Date: 20120625
  Receipt Date: 20120620
  Transmission Date: 20120825
  Serious: Yes (Death, Hospitalization)
  Sender: FDA-Public Use
  Company Number: PHHY2012BR053336

PATIENT
  Sex: Male
  Weight: 62 kg

DRUGS (5)
  1. MEMANTINE HYDROCHLORIDE [Concomitant]
     Indication: DEMENTIA ALZHEIMER'S TYPE
     Dosage: 1 DF, DAILY
  2. EXELON [Suspect]
     Indication: DEMENTIA ALZHEIMER'S TYPE
     Dosage: 4.6 MG, DAILY
     Route: 062
     Dates: start: 20110101
  3. PRAMIPEXOLE DIHYDROCHLORIDE [Concomitant]
     Indication: EXTRAPYRAMIDAL DISORDER
  4. RISPERIDONE [Concomitant]
     Indication: ABNORMAL BEHAVIOUR
     Dosage: 1 DF, BID
  5. EXELON [Suspect]
     Dosage: 9.5 MG, DAILY
     Route: 062

REACTIONS (5)
  - DEMENTIA ALZHEIMER'S TYPE [None]
  - PNEUMONIA [None]
  - DEHYDRATION [None]
  - CARDIAC ARREST [None]
  - CONVULSION [None]
